FAERS Safety Report 5558215-5 (Version None)
Quarter: 2007Q4

REPORT INFORMATION
  Report Type: 
  Country: None (occurrence: None)
  Receive Date: 20071214
  Receipt Date: 20071203
  Transmission Date: 20080405
  Serious: Yes (Hospitalization, Other)
  Sender: FDA-Public Use
  Company Number: US-PFIZER INC-2007073501

PATIENT
  Sex: Male
  Weight: 82.7 kg

DRUGS (7)
  1. LYRICA [Suspect]
     Indication: PARAESTHESIA
  2. LYRICA [Suspect]
     Indication: BURNING SENSATION
  3. LYRICA [Suspect]
     Indication: HYPOAESTHESIA
  4. METFORMIN HCL [Concomitant]
     Indication: DIABETES MELLITUS
  5. PERCOCET [Concomitant]
     Indication: PAIN
  6. TRICOR [Concomitant]
     Indication: BLOOD CHOLESTEROL INCREASED
  7. ADALAT [Concomitant]
     Indication: HYPERTENSION

REACTIONS (9)
  - ABDOMINAL PAIN UPPER [None]
  - DRUG INEFFECTIVE [None]
  - HYPERSOMNIA [None]
  - INSOMNIA [None]
  - PANCREATIC ENLARGEMENT [None]
  - PANCREATIC INJURY [None]
  - PULMONARY OEDEMA [None]
  - SYNCOPE [None]
  - WEIGHT DECREASED [None]
